FAERS Safety Report 12557027 (Version 4)
Quarter: 2016Q3

REPORT INFORMATION
  Report Type: Spontaneous
  Country: US (occurrence: US)
  Receive Date: 20160714
  Receipt Date: 20160928
  Transmission Date: 20161109
  Serious: Yes (Death, Hospitalization, Other)
  Sender: FDA-Public Use
  Company Number: US-BAYER-2016-132376

PATIENT
  Age: 69 Year
  Sex: Male

DRUGS (5)
  1. XOFIGO [Suspect]
     Active Substance: RADIUM RA-223 DICHLORIDE
     Indication: PROSTATE CANCER STAGE IV
     Dosage: 86.70 UCI, ONCE EVERY 28 DAYS
     Route: 042
     Dates: start: 20160713
  2. XOFIGO [Suspect]
     Active Substance: RADIUM RA-223 DICHLORIDE
     Indication: METASTASES TO BONE
  3. LUPRON [Concomitant]
     Active Substance: LEUPROLIDE ACETATE
  4. XTANDI [Suspect]
     Active Substance: ENZALUTAMIDE
     Indication: PROSTATE CANCER
     Dosage: 120 MG, QD
     Route: 048
  5. XTANDI [Suspect]
     Active Substance: ENZALUTAMIDE
     Indication: PROSTATE CANCER
     Dosage: 160 MG, QD
     Route: 048
     Dates: start: 20160405

REACTIONS (23)
  - Constipation [Not Recovered/Not Resolved]
  - Nausea [Unknown]
  - Nausea [Unknown]
  - Peripheral swelling [None]
  - Abasia [None]
  - Constipation [Not Recovered/Not Resolved]
  - Pain [None]
  - Loss of consciousness [None]
  - Dyspnoea [None]
  - Arthralgia [None]
  - Lethargy [None]
  - Hot flush [None]
  - Thrombosis [Fatal]
  - Malaise [None]
  - Musculoskeletal chest pain [None]
  - Cardiac failure [None]
  - Back pain [None]
  - Diarrhoea [Unknown]
  - Decreased appetite [None]
  - Fatigue [None]
  - Vomiting [Recovered/Resolved]
  - Vomiting [Unknown]
  - Muscular weakness [None]

NARRATIVE: CASE EVENT DATE: 201605
